FAERS Safety Report 8876391 (Version 1)
Quarter: 2012Q4

REPORT INFORMATION
  Report Type: 
  Country: US (occurrence: US)
  Receive Date: 20121023
  Receipt Date: 20121023
  Transmission Date: 20130627
  Serious: Yes (Other)
  Sender: FDA-Public Use
  Company Number: US-ASTELLAS-2012US004622

PATIENT
  Age: 68 Year
  Sex: Female
  Weight: 91 kg

DRUGS (13)
  1. LEXISCAN [Suspect]
     Indication: SCAN MYOCARDIAL PERFUSION
     Dosage: UNK
     Route: 042
     Dates: start: 20120425, end: 20120425
  2. NORVASC [Concomitant]
     Indication: PRODUCT USED FOR UNKNOWN INDICATION
     Dosage: 5 mg, UID/QD
     Route: 048
  3. CALCIUM 600 + D [Concomitant]
     Indication: PRODUCT USED FOR UNKNOWN INDICATION
     Dosage: 600-125 mg, tid
     Route: 048
  4. CILOSTAZOL [Concomitant]
     Indication: ANGIOPATHY
     Dosage: 100 mg, bid
     Route: 048
  5. PLAVIX [Concomitant]
     Indication: PRODUCT USED FOR UNKNOWN INDICATION
     Dosage: 75 mg, UID/QD
     Route: 048
  6. FISH OIL [Concomitant]
     Indication: PRODUCT USED FOR UNKNOWN INDICATION
     Dosage: 1000 mg, bid
     Route: 048
  7. HYDRODIURIL [Concomitant]
     Indication: PRODUCT USED FOR UNKNOWN INDICATION
     Dosage: 50 mg, UID/QD
     Route: 048
  8. TOPROL [Concomitant]
     Indication: PRODUCT USED FOR UNKNOWN INDICATION
     Dosage: 100 mg, bid
     Route: 048
  9. NITROQUICK [Concomitant]
     Indication: CHEST PAIN
     Dosage: 0.4 mg, every 5 min prn
     Route: 060
  10. PRAVACHOL [Concomitant]
     Indication: HYPERLIPIDAEMIA
     Dosage: 80 mg, QHS
     Route: 048
  11. ALTACE [Concomitant]
     Indication: HYPERTENSION
     Dosage: 10 mg, UID/QD
     Route: 048
  12. ASPIRIN [Concomitant]
     Indication: PRODUCT USED FOR UNKNOWN INDICATION
     Dosage: 325 mg, UID/QD
     Route: 048
  13. DIAZEPAM [Concomitant]
     Indication: MUSCLE SPASMS
     Dosage: 2.5 to 5 mq Q8 prn
     Route: 048

REACTIONS (2)
  - Cardiac arrest [Recovered/Resolved]
  - Atrioventricular block [Recovered/Resolved]
